FAERS Safety Report 13125977 (Version 1)
Quarter: 2017Q1

REPORT INFORMATION
  Report Type: Spontaneous
  Country: US (occurrence: US)
  Receive Date: 20170118
  Receipt Date: 20170118
  Transmission Date: 20170428
  Serious: No
  Sender: FDA-Public Use
  Company Number: US-GLAXOSMITHKLINE-US2017GSK002590

PATIENT
  Sex: Female
  Weight: 70 kg

DRUGS (3)
  1. DYAZIDE [Suspect]
     Active Substance: HYDROCHLOROTHIAZIDE\TRIAMTERENE
     Indication: PRODUCT USED FOR UNKNOWN INDICATION
  2. HEPATITIS B VACCINE SOLUTION FOR INJECTION [Suspect]
     Active Substance: HEPATITIS B VIRUS VACCINE
     Indication: PROPHYLAXIS
  3. LAMICTAL [Suspect]
     Active Substance: LAMOTRIGINE
     Indication: PRODUCT USED FOR UNKNOWN INDICATION

REACTIONS (1)
  - Drug hypersensitivity [Unknown]
